FAERS Safety Report 4320988-7 (Version None)
Quarter: 2004Q1

REPORT INFORMATION
  Report Type: 
  Country: None (occurrence: None)
  Receive Date: 20040318
  Receipt Date: 20040304
  Transmission Date: 20041129
  Serious: Yes (Other)
  Sender: FDA-Public Use
  Company Number: 2004-06761

PATIENT
  Age: 45 Year
  Sex: Male
  Weight: 110 kg

DRUGS (1)
  1. HEPSERA [Suspect]
     Indication: HEPATITIS B
     Dosage: 10 M G QD PO
     Route: 048
     Dates: start: 20030301

REACTIONS (3)
  - ANXIETY [None]
  - PERSECUTORY DELUSION [None]
  - PSYCHOTIC DISORDER [None]
